FAERS Safety Report 7120994-3 (Version None)
Quarter: 2010Q4

REPORT INFORMATION
  Report Type: 
  Country: None (occurrence: None)
  Receive Date: 20101124
  Receipt Date: 20100324
  Transmission Date: 20110411
  Serious: Yes (Other)
  Sender: FDA-Public Use
  Company Number: US-PFIZER INC-2010003502

PATIENT
  Sex: Female

DRUGS (1)
  1. TIKOSYN [Suspect]
     Indication: ATRIAL FIBRILLATION
     Dosage: 240 UG, UNK
     Route: 048

REACTIONS (7)
  - ASTHENIA [None]
  - ELECTROCARDIOGRAM QT PROLONGED [None]
  - FAECES DISCOLOURED [None]
  - FEELING COLD [None]
  - FREQUENT BOWEL MOVEMENTS [None]
  - GALLBLADDER DISORDER [None]
  - LIVER DISORDER [None]
